FAERS Safety Report 6073065 (Version 3)
Quarter: 2014Q1

REPORT INFORMATION
  Report Type: Spontaneous
  Country: GB (occurrence: GB)
  Receive Date: 20060627
  Receipt Date: 20140313
  Transmission Date: 20141002
  Serious: Yes (Life-Threatening, Hospitalization, Other)
  Sender: FDA-Public Use
  Company Number: GB-GILEAD-2006-0009781

PATIENT
  Age: 32 Year
  Sex: Male
  Weight: 82 kg

DRUGS (10)
  1. VIREAD [Suspect]
     Indication: HIV INFECTION
     Route: 048
     Dates: start: 20050801, end: 20060609
  2. ATAZANAVIR [Suspect]
     Indication: HIV INFECTION
     Route: 048
     Dates: start: 20050801, end: 20060609
  3. RITONAVIR [Suspect]
     Indication: HIV INFECTION
     Route: 048
     Dates: start: 20050801, end: 20060609
  4. DIDANOSINE [Suspect]
     Indication: HIV INFECTION
     Dosage: 250 MG, QD
     Route: 048
     Dates: start: 20050801, end: 20060609
  5. REYATAZ [Suspect]
     Indication: HIV INFECTION
     Dosage: 300 MG, UNK
     Route: 048
     Dates: start: 20050801, end: 20060610
  6. VIDEX [Suspect]
     Indication: HIV INFECTION
     Dosage: 250 MG, UNK
     Route: 048
     Dates: start: 20050801, end: 20060610
  7. SEPTRIN [Concomitant]
     Route: 048
     Dates: start: 200503
  8. BACTRIM [Concomitant]
     Dosage: UNK
     Dates: start: 20050301
  9. CREATINE [Concomitant]
  10. ZIDOVUDINE [Concomitant]

REACTIONS (10)
  - Myositis [Recovered/Resolved]
  - Myalgia [Recovered/Resolved]
  - Blood creatine phosphokinase increased [Recovered/Resolved]
  - Blood antidiuretic hormone increased [Recovered/Resolved]
  - Myoglobin blood increased [Recovered/Resolved]
  - Mobility decreased [Recovered/Resolved]
  - Pain in extremity [Recovered/Resolved]
  - Muscle injury [Recovered/Resolved]
  - Alanine aminotransferase increased [Recovered/Resolved]
  - Aspartate aminotransferase increased [Recovered/Resolved]
